FAERS Safety Report 5506308-0 (Version None)
Quarter: 2007Q4

REPORT INFORMATION
  Report Type: 
  Country: None (occurrence: None)
  Receive Date: 20071102
  Receipt Date: 20071102
  Transmission Date: 20080405
  Serious: Yes (Hospitalization)
  Sender: FDA-Public Use
  Company Number: None

PATIENT
  Sex: Female
  Weight: 77.11 kg

DRUGS (4)
  1. FLUOROURACIL [Suspect]
     Dosage: 17472 MG
     Dates: end: 20071011
  2. BEVACIZUMAB (RHUMAB VEGF) [Suspect]
     Dosage: 1571 MG
     Dates: end: 20071011
  3. LEUCOVORIN CALCIUM [Suspect]
     Dosage: 3120 MG
     Dates: end: 20071011
  4. ELOXATIN [Suspect]
     Dosage: 254 MG
     Dates: end: 20070913

REACTIONS (5)
  - BRAIN SCAN ABNORMAL [None]
  - CAROTID ARTERY STENOSIS [None]
  - CEREBRAL INFARCTION [None]
  - NEUROPATHY [None]
  - PERONEAL NERVE PALSY [None]
